FAERS Safety Report 7494884-0 (Version None)
Quarter: 2011Q2

REPORT INFORMATION
  Report Type: 
  Country: None (occurrence: None)
  Receive Date: 20110520
  Receipt Date: 20110504
  Transmission Date: 20111010
  Serious: No
  Sender: FDA-Public Use
  Company Number: US-B.I. PHARMACEUTICALS,INC./RIDGEFIELD-2011-BP-04503BP

PATIENT
  Age: 66 Year
  Sex: Male

DRUGS (22)
  1. ADVAIR DISKUS 100/50 [Concomitant]
     Indication: SLEEP APNOEA SYNDROME
  2. NEURPATH-B [Concomitant]
  3. TYLENOL (CAPLET) [Concomitant]
     Indication: BACK PAIN
  4. PRADAXA [Suspect]
     Indication: ANTICOAGULANT THERAPY
  5. SOTALOL HCL [Concomitant]
     Indication: CARDIAC DISORDER
     Route: 048
     Dates: start: 20070101
  6. HYDROCODONE [Concomitant]
     Indication: BACK INJURY
     Route: 048
  7. FEXMID [Concomitant]
     Indication: MUSCLE RELAXANT THERAPY
  8. TESTOSTERONE CYPIONATE [Concomitant]
  9. CENTRUM SILVER [Concomitant]
     Indication: VITAMIN SUPPLEMENTATION
  10. VYTORIN [Concomitant]
     Indication: BLOOD CHOLESTEROL INCREASED
     Route: 048
     Dates: start: 20070101
  11. TEMAZ [Concomitant]
     Indication: SLEEP DISORDER
     Route: 048
     Dates: start: 20090101
  12. LEXAPRO [Concomitant]
     Indication: MOOD ALTERED
     Dosage: 160 MG
     Route: 048
     Dates: start: 20100701
  13. OXYCODONE HCL [Concomitant]
     Indication: BACK INJURY
     Route: 048
  14. OXYCODONE HCL [Concomitant]
     Indication: PAIN
  15. CYMBALTA [Concomitant]
     Indication: ANTIDEPRESSANT THERAPY
  16. PRADAXA [Suspect]
     Indication: ATRIAL FIBRILLATION
     Dosage: 300 MG
     Route: 048
     Dates: start: 20110129
  17. METOPROLOL SUCCINATE [Concomitant]
     Indication: HYPERTENSION
     Dosage: 200 MG
     Route: 048
     Dates: start: 20070101
  18. LYRICA [Concomitant]
     Indication: BACK PAIN
     Route: 048
  19. HYDROCODONE [Concomitant]
     Indication: BACK PAIN
  20. ADVAIR DISKUS 100/50 [Concomitant]
     Indication: INHALATION THERAPY
  21. BUPROPION HYDROCHLORIDE [Concomitant]
     Indication: ANTIDEPRESSANT THERAPY
  22. OSTEO BI-FLEX [Concomitant]
     Indication: BACK PAIN

REACTIONS (6)
  - THROAT TIGHTNESS [None]
  - PHARYNGEAL OEDEMA [None]
  - DIZZINESS [None]
  - THROAT IRRITATION [None]
  - DYSPHAGIA [None]
  - DYSPEPSIA [None]
